FAERS Safety Report 9333569 (Version 1)
Quarter: 2013Q2

REPORT INFORMATION
  Report Type: Spontaneous
  Country: US (occurrence: US)
  Receive Date: 20130606
  Receipt Date: 20130606
  Transmission Date: 20140414
  Serious: No
  Sender: FDA-Public Use
  Company Number: US-AMGEN-USASP2013025435

PATIENT
  Age: 54 Year
  Sex: Female

DRUGS (2)
  1. XGEVA [Suspect]
     Indication: BREAST CANCER METASTATIC
     Dosage: UNK UNK, Q4WK
     Dates: start: 2012
  2. FASLODEX                           /01285001/ [Concomitant]

REACTIONS (2)
  - Tooth infection [Unknown]
  - Arthralgia [Unknown]
